FAERS Safety Report 8259886-5 (Version None)
Quarter: 2012Q2

REPORT INFORMATION
  Report Type: 
  Country: None (occurrence: None)
  Receive Date: 20120404
  Receipt Date: 20120330
  Transmission Date: 20120825
  Serious: Yes (Other)
  Sender: FDA-Public Use
  Company Number: JP-GLAXOSMITHKLINE-B0787966A

PATIENT
  Age: 8 Year
  Sex: Male
  Weight: 30 kg

DRUGS (1)
  1. RELENZA [Suspect]
     Indication: INFLUENZA
     Dosage: 4IUAX PER DAY
     Route: 055
     Dates: start: 20120306, end: 20120307

REACTIONS (4)
  - HALLUCINATION, AUDITORY [None]
  - HALLUCINATION [None]
  - ABNORMAL BEHAVIOUR [None]
  - DIZZINESS [None]
